FAERS Safety Report 10462569 (Version 5)
Quarter: 2016Q1

REPORT INFORMATION
  Report Type: Report from Study
  Country: US (occurrence: US)
  Receive Date: 20140918
  Receipt Date: 20160208
  Transmission Date: 20160525
  Serious: Yes (Other)
  Sender: FDA-Public Use
  Company Number: US-ABBVIE-12P-163-0985946-00

PATIENT
  Age: 40 Year
  Sex: Female
  Weight: 63.56 kg

DRUGS (7)
  1. PILOCARPINE EYE DROPS [Concomitant]
     Dosage: 0.2-0.5%
     Dates: start: 201202
  2. HUMIRA [Suspect]
     Active Substance: ADALIMUMAB
     Route: 058
     Dates: start: 20120523
  3. HUMIRA [Suspect]
     Active Substance: ADALIMUMAB
     Indication: PSORIASIS
     Route: 058
     Dates: start: 201109, end: 201109
  4. PRED [Concomitant]
     Active Substance: PREDNISONE
     Indication: GLAUCOMA
     Dates: start: 201202
  5. COMBIGAN [Concomitant]
     Active Substance: BRIMONIDINE TARTRATE\TIMOLOL MALEATE
     Indication: GLAUCOMA
     Dates: start: 201202
  6. PILOCARPINE EYE DROPS [Concomitant]
     Indication: GLAUCOMA
     Dosage: 1%
     Dates: start: 201202
  7. DERMASMOOTHE SCALP OIL [Concomitant]
     Indication: PSORIASIS
     Dates: start: 201106

REACTIONS (1)
  - Angle closure glaucoma [Not Recovered/Not Resolved]

NARRATIVE: CASE EVENT DATE: 201208
